FAERS Safety Report 4577908-X (Version None)
Quarter: 2005Q1

REPORT INFORMATION
  Report Type: 
  Country: None (occurrence: None)
  Receive Date: 20050209
  Receipt Date: 20050131
  Transmission Date: 20050727
  Serious: Yes (Other)
  Sender: FDA-Public Use
  Company Number: 2005-01-2042

PATIENT
  Age: 17 Year
  Sex: Female

DRUGS (1)
  1. AERIUS TABLETS (DESLORATADINE) 'LIKE CLARINEX' [Suspect]
     Dosage: 1 TAB QD ORAL
     Route: 048

REACTIONS (1)
  - TETANY [None]
